FAERS Safety Report 4618939-0 (Version None)
Quarter: 2005Q2

REPORT INFORMATION
  Report Type: 
  Country: None (occurrence: None)
  Receive Date: 20050302
  Receipt Date: 20041019
  Transmission Date: 20051028
  Serious: Yes (Life-Threatening, Hospitalization)
  Sender: FDA-Public Use
  Company Number: 200420864BWH

PATIENT
  Age: 67 Year
  Sex: Male
  Weight: 87 kg

DRUGS (14)
  1. TRASYLOL [Suspect]
     Indication: CARDIAC ANEURYSM REPAIR
     Dosage: 200 ML, ONCE, INTRAVENOUS;200 ML, ONCE, INTRAVENOUS; 50 ML, Q1HR, INTRAVENOUS
     Route: 042
     Dates: start: 20041018
  2. TRASYLOL [Suspect]
     Indication: CORONARY ARTERY SURGERY
     Dosage: 200 ML, ONCE, INTRAVENOUS;200 ML, ONCE, INTRAVENOUS; 50 ML, Q1HR, INTRAVENOUS
     Route: 042
     Dates: start: 20041018
  3. TRASYLOL [Suspect]
     Indication: CARDIAC ANEURYSM REPAIR
     Dosage: 200 ML, ONCE, INTRAVENOUS;200 ML, ONCE, INTRAVENOUS; 50 ML, Q1HR, INTRAVENOUS
     Route: 042
     Dates: start: 20041018
  4. TRASYLOL [Suspect]
     Indication: CORONARY ARTERY SURGERY
     Dosage: 200 ML, ONCE, INTRAVENOUS;200 ML, ONCE, INTRAVENOUS; 50 ML, Q1HR, INTRAVENOUS
     Route: 042
     Dates: start: 20041018
  5. TRASYLOL [Suspect]
     Indication: CARDIAC ANEURYSM REPAIR
     Dosage: 200 ML, ONCE, INTRAVENOUS;200 ML, ONCE, INTRAVENOUS; 50 ML, Q1HR, INTRAVENOUS
     Route: 042
     Dates: start: 20041018
  6. TRASYLOL [Suspect]
     Indication: CORONARY ARTERY SURGERY
     Dosage: 200 ML, ONCE, INTRAVENOUS;200 ML, ONCE, INTRAVENOUS; 50 ML, Q1HR, INTRAVENOUS
     Route: 042
     Dates: start: 20041018
  7. NATRECOR [Concomitant]
  8. HEPARIN [Concomitant]
  9. PLASMALYTE 56 IN 5% DEXTROSE [Concomitant]
  10. ALBUMIN HUMAN ^BERNA^ [Concomitant]
  11. PROTAMINE [Concomitant]
  12. PLATELETS [Concomitant]
  13. FRESH FROZEN PLASMA [Concomitant]
  14. KRIOPRECIPITAT [Concomitant]

REACTIONS (2)
  - CARDIAC ARREST [None]
  - CORONARY BYPASS THROMBOSIS [None]
